FAERS Safety Report 8946912 (Version 1)
Quarter: 2012Q4

REPORT INFORMATION
  Report Type: 
  Country: BE (occurrence: BE)
  Receive Date: 20121205
  Receipt Date: 20121205
  Transmission Date: 20130627
  Serious: Yes (Other)
  Sender: FDA-Public Use
  Company Number: BE-GLAXOSMITHKLINE-B0849730A

PATIENT

DRUGS (1)
  1. PAZOPANIB [Suspect]

REACTIONS (2)
  - Haemolytic uraemic syndrome [Unknown]
  - Thrombotic thrombocytopenic purpura [Unknown]
